FAERS Safety Report 7790604-0 (Version None)
Quarter: 2011Q3

REPORT INFORMATION
  Report Type: 
  Country: None (occurrence: None)
  Receive Date: 20110930
  Receipt Date: 20110922
  Transmission Date: 20111222
  Serious: Yes (Other)
  Sender: FDA-Public Use
  Company Number: PHHY2011TR85404

PATIENT
  Age: 62 Year
  Sex: Male

DRUGS (2)
  1. METHYLPREDNISOLONE [Suspect]
     Indication: PEMPHIGUS
     Dosage: 120 MG, QD
  2. AZATHIOPRINE [Suspect]
     Indication: PEMPHIGUS
     Dosage: 150 MG, QD

REACTIONS (8)
  - PYREXIA [None]
  - AORTIC VALVE INCOMPETENCE [None]
  - ENDOCARDITIS [None]
  - PALPITATIONS [None]
  - CARDIAC VALVE VEGETATION [None]
  - STAPHYLOCOCCUS TEST POSITIVE [None]
  - FATIGUE [None]
  - DILATATION VENTRICULAR [None]
